FAERS Safety Report 7163167-0 (Version None)
Quarter: 2010Q4

REPORT INFORMATION
  Report Type: 
  Country: None (occurrence: None)
  Receive Date: 20101201
  Receipt Date: 20101118
  Transmission Date: 20110411
  Serious: Yes (Hospitalization)
  Sender: FDA-Public Use
  Company Number: ACO_20098_2010

PATIENT
  Age: 67 Year
  Sex: Female
  Weight: 71.7 kg

DRUGS (12)
  1. AMPYRA (DALFAMPRIDINE) TABLET, 10MG [Suspect]
     Indication: GAIT DISTURBANCE
     Dosage: 10 MG, BID, ORAL, 10 MG, BID, ORAL
     Route: 048
     Dates: start: 20100824, end: 20100908
  2. AMPYRA (DALFAMPRIDINE) TABLET, 10MG [Suspect]
     Indication: MULTIPLE SCLEROSIS
     Dosage: 10 MG, BID, ORAL, 10 MG, BID, ORAL
     Route: 048
     Dates: start: 20100824, end: 20100908
  3. AMPYRA (DALFAMPRIDINE) TABLET, 10MG [Suspect]
     Indication: GAIT DISTURBANCE
     Dosage: 10 MG, BID, ORAL, 10 MG, BID, ORAL
     Route: 048
     Dates: start: 20100912, end: 20101004
  4. AMPYRA (DALFAMPRIDINE) TABLET, 10MG [Suspect]
     Indication: MULTIPLE SCLEROSIS
     Dosage: 10 MG, BID, ORAL, 10 MG, BID, ORAL
     Route: 048
     Dates: start: 20100912, end: 20101004
  5. AMANTADINE HCL [Concomitant]
  6. BACLOFEN [Concomitant]
  7. FLEXERIL [Concomitant]
  8. MULTI-VITAMINS [Concomitant]
  9. FISH OIL (FISH OIL) [Concomitant]
  10. IRON (IRON) [Concomitant]
  11. CALCIUM (CALCIUM) [Concomitant]
  12. COENZYME Q10 [Concomitant]

REACTIONS (9)
  - BALANCE DISORDER [None]
  - CONDITION AGGRAVATED [None]
  - CYSTITIS [None]
  - DIZZINESS [None]
  - FALL [None]
  - GAIT DISTURBANCE [None]
  - HIP FRACTURE [None]
  - MUSCLE SPASMS [None]
  - VERTIGO [None]
